FAERS Safety Report 7765316-X (Version None)
Quarter: 2011Q3

REPORT INFORMATION
  Report Type: 
  Country: None (occurrence: None)
  Receive Date: 20110921
  Receipt Date: 20110913
  Transmission Date: 20111222
  Serious: Yes (Death)
  Sender: FDA-Public Use
  Company Number: JP-AMGEN-JPNCT2011042526

PATIENT
  Age: 61 Year
  Sex: Male
  Weight: 45 kg

DRUGS (21)
  1. FLUOROURACIL [Suspect]
     Indication: COLORECTAL CANCER
     Route: 041
     Dates: start: 20100913, end: 20100927
  2. ANTIHISTAMINES [Concomitant]
     Indication: PROPHYLAXIS
     Dosage: UNK
  3. CORTICOSTEROIDS [Concomitant]
     Indication: PROPHYLAXIS
     Dosage: UNK
  4. LEUCOVORIN CALCIUM [Concomitant]
     Route: 041
     Dates: start: 20101013, end: 20110118
  5. LEUCOVORIN CALCIUM [Concomitant]
     Route: 041
     Dates: start: 20110202, end: 20110413
  6. ACETAMINOPHEN [Concomitant]
     Dosage: UNK
     Route: 048
  7. PANITUMUMAB [Suspect]
     Dosage: 5.7 MG/KG, Q2WK
     Route: 041
     Dates: start: 20101221, end: 20101221
  8. SEROQUEL [Concomitant]
     Dosage: UNK
     Route: 048
  9. LYRICA [Concomitant]
     Dosage: UNK
     Route: 048
  10. LEUCOVORIN CALCIUM [Concomitant]
     Indication: COLORECTAL CANCER
     Route: 041
     Dates: start: 20100913, end: 20100927
  11. DUROTEP [Concomitant]
     Dosage: UNK
     Route: 062
  12. PANITUMUMAB [Suspect]
     Dosage: 6 MG/KG, Q2WK
     Route: 041
     Dates: start: 20110330, end: 20110413
  13. TOPOTECAN [Suspect]
     Indication: COLORECTAL CANCER
     Route: 041
     Dates: start: 20110202, end: 20110413
  14. PANITUMUMAB [Suspect]
     Dosage: 4.8 MG/KG, Q2WK
     Route: 041
     Dates: start: 20101122, end: 20101207
  15. FLUOROURACIL [Suspect]
     Route: 041
     Dates: start: 20101013, end: 20110118
  16. RABEPRAZOLE SODIUM [Concomitant]
     Dosage: UNK
     Route: 048
  17. PANITUMUMAB [Suspect]
     Indication: COLORECTAL CANCER
     Dosage: 6 MG/KG, Q2WK
     Route: 041
     Dates: start: 20100913, end: 20101026
  18. PANITUMUMAB [Suspect]
     Dosage: 6 MG/KG, Q2WK
     Route: 041
     Dates: start: 20110104, end: 20110302
  19. FLUOROURACIL [Suspect]
     Route: 040
     Dates: start: 20110202, end: 20110413
  20. OXALIPLATIN [Concomitant]
     Indication: COLORECTAL CANCER
     Route: 041
     Dates: start: 20100913, end: 20100927
  21. CELECOXIB [Concomitant]
     Dosage: UNK
     Route: 048

REACTIONS (4)
  - HYPERKALAEMIA [None]
  - COLORECTAL CANCER [None]
  - WHITE BLOOD CELL COUNT DECREASED [None]
  - DERMATITIS ACNEIFORM [None]
